FAERS Safety Report 23543883 (Version 2)
Quarter: 2024Q1

REPORT INFORMATION
  Report Type: Spontaneous
  Country: US (occurrence: US)
  Receive Date: 20240220
  Receipt Date: 20240308
  Transmission Date: 20240410
  Serious: No
  Sender: FDA-Public Use
  Company Number: US-Prasco Laboratories-PRAS20240062

PATIENT
  Sex: Female

DRUGS (2)
  1. ESTRADIOL [Suspect]
     Active Substance: ESTRADIOL
     Indication: Atrophic vulvovaginitis
     Dosage: 1-3 TIMES WEEKLY
     Route: 067
     Dates: start: 2023, end: 20230824
  2. ESTRADIOL [Suspect]
     Active Substance: ESTRADIOL
     Indication: Bladder disorder

REACTIONS (4)
  - Vulvovaginal pain [Recovered/Resolved]
  - Malabsorption from application site [Recovered/Resolved]
  - Off label use [None]
  - Wrong technique in product usage process [None]

NARRATIVE: CASE EVENT DATE: 20230101
